FAERS Safety Report 9511229 (Version 1)
Quarter: 2013Q3

REPORT INFORMATION
  Report Type: Spontaneous
  Country: US (occurrence: US)
  Receive Date: 20130910
  Receipt Date: 20130910
  Transmission Date: 20140515
  Serious: No
  Sender: FDA-Public Use
  Company Number: US-009507513-1309USA001509

PATIENT
  Sex: Male

DRUGS (2)
  1. PEGINTRON [Suspect]
     Indication: MALIGNANT MELANOMA
     Dosage: 6MCG/KG/WEEK
     Dates: start: 201308, end: 2013
  2. PEGINTRON [Suspect]
     Dosage: 3 MCG/KG/WEEK
     Dates: start: 2013

REACTIONS (4)
  - Blood creatinine increased [Unknown]
  - Chills [Unknown]
  - Pyrexia [Unknown]
  - Off label use [Unknown]
